FAERS Safety Report 5420769-7 (Version None)
Quarter: 2007Q3

REPORT INFORMATION
  Report Type: 
  Country: None (occurrence: None)
  Receive Date: 20070816
  Receipt Date: 20070801
  Transmission Date: 20080115
  Serious: Yes (Hospitalization)
  Sender: FDA-Public Use
  Company Number: 2007001412

PATIENT
  Age: 73 Year
  Sex: Male

DRUGS (4)
  1. ERLOTINIB (TABLET) [Suspect]
     Indication: NON-SMALL CELL LUNG CANCER
     Dosage: 150 MG (QD), ORAL
     Route: 048
     Dates: start: 20070510
  2. LOPERAMIDE HYDROCHLORIDE (LOPRAMIDE HYDROCHLORIDE) [Concomitant]
  3. EFFERALAGAN CODEINE (PANADEINE CO) [Concomitant]
  4. DEROXAT (PAROXETINE HYDROCHLORIDE) [Concomitant]

REACTIONS (1)
  - INTESTINAL OBSTRUCTION [None]
